FAERS Safety Report 9088981 (Version 1)
Quarter: 2013Q1

REPORT INFORMATION
  Report Type: Spontaneous
  Country: US (occurrence: US)
  Receive Date: 20130201
  Receipt Date: 20130201
  Transmission Date: 20140127
  Serious: No
  Sender: FDA-Public Use
  Company Number: US-ABBOTT-12P-163-1025025-00

PATIENT
  Age: 64 Year
  Sex: Female

DRUGS (2)
  1. HUMIRA [Suspect]
     Indication: RHEUMATOID ARTHRITIS
     Route: 058
     Dates: start: 201209, end: 20121117
  2. HUMIRA [Suspect]
     Route: 058

REACTIONS (4)
  - Cough [Unknown]
  - Injection site pain [Unknown]
  - Influenza [Unknown]
  - Drug ineffective [Unknown]
